FAERS Safety Report 13307117 (Version 2)
Quarter: 2017Q1

REPORT INFORMATION
  Report Type: Spontaneous
  Country: US (occurrence: US)
  Receive Date: 20170308
  Receipt Date: 20170321
  Transmission Date: 20170428
  Serious: Yes (Hospitalization)
  Sender: FDA-Public Use
  Company Number: US-BAUSCH-BL-2017-005889

PATIENT
  Age: 61 Year
  Sex: Female
  Weight: 96.25 kg

DRUGS (1)
  1. XIFAXAN [Suspect]
     Active Substance: RIFAXIMIN
     Indication: HEPATIC ENCEPHALOPATHY
     Route: 048
     Dates: start: 2014

REACTIONS (2)
  - Sepsis [Recovering/Resolving]
  - Arthroscopy [Unknown]

NARRATIVE: CASE EVENT DATE: 2017
